FAERS Safety Report 7323444-7 (Version None)
Quarter: 2011Q1

REPORT INFORMATION
  Report Type: 
  Country: None (occurrence: None)
  Receive Date: 20110203
  Receipt Date: 20110124
  Transmission Date: 20110831
  Serious: Yes (Hospitalization)
  Sender: FDA-Public Use
  Company Number: WSDF_00739

PATIENT
  Sex: Male

DRUGS (9)
  1. TYLENOL [Concomitant]
  2. CEFTRIAXONE [Concomitant]
  3. WINRHO SDF LIQUID [Suspect]
     Indication: IDIOPATHIC THROMBOCYTOPENIC PURPURA
     Dosage: 75 UG/KG, TOTAL INTRAVENOUS (NOT OTHERWISE SPECIFIED)
     Route: 042
     Dates: start: 20080305, end: 20080305
  4. ZOFRAN [Concomitant]
  5. DEXTROMETHORPHAN HYDROBROMIDE [Concomitant]
  6. NUBAIN [Concomitant]
  7. CORICIDIN [Concomitant]
  8. BENADRYL [Concomitant]
  9. GUAIFENESIN [Concomitant]

REACTIONS (19)
  - OROPHARYNGEAL PAIN [None]
  - HYPOMAGNESAEMIA [None]
  - INCREASED UPPER AIRWAY SECRETION [None]
  - THROMBOCYTOPENIA [None]
  - PAIN IN EXTREMITY [None]
  - PANCREATITIS [None]
  - UPPER-AIRWAY COUGH SYNDROME [None]
  - COUGH [None]
  - UPPER RESPIRATORY TRACT INFECTION [None]
  - HAEMATURIA [None]
  - NASAL CONGESTION [None]
  - PYREXIA [None]
  - CONTUSION [None]
  - LEUKOCYTOSIS [None]
  - INFLUENZA [None]
  - GINGIVAL BLEEDING [None]
  - OVERDOSE [None]
  - RENAL FAILURE ACUTE [None]
  - HAEMATOCHEZIA [None]
